FAERS Safety Report 7802639-X (Version None)
Quarter: 2011Q4

REPORT INFORMATION
  Report Type: 
  Country: None (occurrence: None)
  Receive Date: 20111007
  Receipt Date: 20110926
  Transmission Date: 20120403
  Serious: Yes (Other)
  Sender: FDA-Public Use
  Company Number: PHEH2010US03401

PATIENT
  Sex: Female

DRUGS (19)
  1. LISINOPRIL [Concomitant]
  2. METOPROLOL TARTRATE [Concomitant]
  3. GEMFIBROZIL [Concomitant]
  4. ALPRAZOLAM [Concomitant]
  5. PREDNISONE [Concomitant]
     Indication: MULTIPLE MYELOMA
  6. DEXAMETHASONE [Concomitant]
  7. ABILIFY [Concomitant]
  8. ASPIRIN [Concomitant]
     Dosage: 81 MG,
  9. PREVACID [Concomitant]
  10. MORPHINE [Concomitant]
  11. LIPITOR [Concomitant]
  12. REVLIMID [Concomitant]
     Dosage: 10 MG,
  13. METFORMIN HYDROCHLORIDE [Concomitant]
  14. CHEMOTHERAPEUTICS [Concomitant]
  15. FUROSEMIDE [Concomitant]
  16. LEXAPRO [Concomitant]
  17. COMPAZINE [Concomitant]
  18. AMITRIPTYLINE HCL [Concomitant]
  19. ZOMETA [Suspect]
     Indication: MULTIPLE MYELOMA
     Dates: end: 20090401

REACTIONS (44)
  - BONE FRAGMENTATION [None]
  - INCISIONAL HERNIA [None]
  - GASTROOESOPHAGEAL REFLUX DISEASE [None]
  - OEDEMA [None]
  - DEEP VEIN THROMBOSIS [None]
  - TACHYCARDIA [None]
  - DEPRESSION [None]
  - DIZZINESS [None]
  - ANHEDONIA [None]
  - FIBROMYALGIA [None]
  - MONOCLONAL GAMMOPATHY [None]
  - NEUTROPENIA [None]
  - HIATUS HERNIA [None]
  - BIPOLAR DISORDER [None]
  - MIGRAINE [None]
  - ANAEMIA [None]
  - EYE SWELLING [None]
  - NEUROPATHY PERIPHERAL [None]
  - DENTAL CARIES [None]
  - URINARY TRACT INFECTION [None]
  - VIRAL UPPER RESPIRATORY TRACT INFECTION [None]
  - HYPOAESTHESIA [None]
  - BREAST PAIN [None]
  - DIABETES MELLITUS [None]
  - METASTASES TO BONE [None]
  - ATELECTASIS [None]
  - SMALL INTESTINAL OBSTRUCTION [None]
  - PAIN [None]
  - ANXIETY [None]
  - EXPOSED BONE IN JAW [None]
  - PALPITATIONS [None]
  - HYPERTENSION [None]
  - PEPTIC ULCER [None]
  - GENERAL PHYSICAL HEALTH DETERIORATION [None]
  - DISABILITY [None]
  - URINARY RETENTION [None]
  - SPINAL OSTEOARTHRITIS [None]
  - OSTEONECROSIS OF JAW [None]
  - ARRHYTHMIA [None]
  - ARTHRITIS [None]
  - DYSLIPIDAEMIA [None]
  - OBESITY [None]
  - CARDIAC DISORDER [None]
  - CHEST PAIN [None]
